FAERS Safety Report 7178732-4 (Version None)
Quarter: 2010Q4

REPORT INFORMATION
  Report Type: 
  Country: None (occurrence: None)
  Receive Date: 20101209
  Receipt Date: 20101129
  Transmission Date: 20110411
  Serious: Yes (Hospitalization, Other)
  Sender: FDA-Public Use
  Company Number: CIP08000657

PATIENT
  Age: 60 Year
  Sex: Female

DRUGS (33)
  1. DIDRONEL [Suspect]
     Indication: OSTEOPOROSIS
     Dosage: 1 TABLET DAILY CYCLIC, ORAL
     Route: 048
     Dates: start: 19981201, end: 20010301
  2. DIDRONEL [Suspect]
     Indication: OSTEOPOROSIS
     Dosage: , ORAL
     Route: 048
     Dates: start: 19940101, end: 19960901
  3. DIDRONEL [Suspect]
     Indication: OSTEOPOROSIS
     Dosage: , ORAL
     Route: 048
     Dates: start: 19961101, end: 19970201
  4. ACTONEL [Suspect]
     Indication: OSTEOPOROSIS
     Dosage: 5 MG DAILY, ORAL
     Route: 048
     Dates: start: 20010312, end: 20041201
  5. ACTONEL [Suspect]
     Dosage: 35 MG, 1 /WEEK, ORAL
     Route: 048
     Dates: start: 20060301
  6. FOSAMAX [Suspect]
     Indication: OSTEOPOROSIS
     Dosage: 70 MG ONCE WEEKLY, ORAL
     Route: 048
     Dates: start: 19960901, end: 19961101
  7. FOSAMAX [Suspect]
     Indication: OSTEOPOROSIS
     Dosage: 70 MG ONCE WEEKLY, ORAL
     Route: 048
     Dates: start: 19970201, end: 19981201
  8. FOSAMAX [Suspect]
     Indication: OSTEOPOROSIS
     Dosage: 70 MG ONCE WEEKLY, ORAL
     Route: 048
     Dates: start: 20041201, end: 20060301
  9. FOSAMAX [Suspect]
     Indication: OSTEOPOROSIS
     Dosage: 70 MG ONCE WEEKLY, ORAL
     Route: 048
     Dates: start: 20060901, end: 20070301
  10. CELEBREX [Concomitant]
  11. CALCITRIOL [Concomitant]
  12. ESTROGENS SOL/INJ [Concomitant]
  13. PROVERA [Concomitant]
  14. NORVASC /00972401/ (AMLODIPINE) [Concomitant]
  15. EVISTA [Concomitant]
  16. VIOXX [Concomitant]
  17. CALCIUM CARBONATE [Concomitant]
  18. ERGOCALCIFEROL [Concomitant]
  19. VITAMIN E /00110501/ (TOCOPHEROL) [Concomitant]
  20. LORAZEPAM [Concomitant]
  21. PERCOCET /00446701/ (PARACETAMOL, OXYCODONE HYDROCHLORIDE, OXYCODONE T [Concomitant]
  22. CENTRUM /00554501/ (MINERALS NOS, VITAMINS NOS) [Concomitant]
  23. DURAGESIC /00070401/ (PARACETAMOL, ORPHENADRINE CITRATE) [Concomitant]
  24. LIPITOR [Concomitant]
  25. COSOPT /01419801/ (TIMOLOL MALEATE, DORZOLAMIDE HYDROCHLORIDE) [Concomitant]
  26. PLANTAGO SPP. (PLANTAGO SPP.) [Concomitant]
  27. ISOPTO CARPINE /00043503/ (PILOCARPINE HYDROCHLORIDE) [Concomitant]
  28. IMOVANE (ZOPICLONE) [Concomitant]
  29. CALCIUM +VIT D (CALCIUM, COLECALCIFEROL) [Concomitant]
  30. ROCALTROL [Concomitant]
  31. ZANTAC [Concomitant]
  32. ZOLOFT [Concomitant]
  33. LASIX [Concomitant]

REACTIONS (20)
  - BONE DENSITY DECREASED [None]
  - BONE LESION [None]
  - DEPRESSION [None]
  - FALL [None]
  - FIBROMYALGIA [None]
  - FRACTURE [None]
  - GINGIVAL BLEEDING [None]
  - GINGIVAL HYPERTROPHY [None]
  - HYPERHIDROSIS [None]
  - INJURY [None]
  - LOCAL SWELLING [None]
  - LOOSE TOOTH [None]
  - NECROTISING ULCERATIVE GINGIVOSTOMATITIS [None]
  - OSTEOARTHRITIS [None]
  - OSTEOMYELITIS [None]
  - OSTEONECROSIS OF JAW [None]
  - POOR PERSONAL HYGIENE [None]
  - PURULENT DISCHARGE [None]
  - ROAD TRAFFIC ACCIDENT [None]
  - TOOTH ABSCESS [None]
